FAERS Safety Report 11134912 (Version 1)
Quarter: 2015Q2

REPORT INFORMATION
  Report Type: Spontaneous
  Country: US (occurrence: US)
  Receive Date: 20150525
  Receipt Date: 20150525
  Transmission Date: 20150821
  Serious: No
  Sender: FDA-Public Use
  Company Number: US-DRREDDYS-USA/USA/15/0046159

PATIENT
  Age: 63 Year
  Sex: Female
  Weight: 61.23 kg

DRUGS (1)
  1. SUMATRIPTAN INJECTION USP, 6 MG/0.5 ML [Suspect]
     Active Substance: SUMATRIPTAN
     Indication: MIGRAINE
     Dosage: INJECT AS NEEDED. MAY REPEAT IN TWO HOURS. MAXIMUM OF 2 DOSES IN 24 HOURS. (STRENGTH 6 MG/0.5 ML)
     Route: 058

REACTIONS (2)
  - Drug dose omission [Unknown]
  - Product physical issue [Unknown]
